FAERS Safety Report 6928808-9 (Version None)
Quarter: 2010Q3

REPORT INFORMATION
  Report Type: 
  Country: None (occurrence: None)
  Receive Date: 20100809
  Receipt Date: 20091020
  Transmission Date: 20110219
  Serious: No
  Sender: FDA-Public Use
  Company Number: US-001044

PATIENT
  Sex: Male

DRUGS (4)
  1. DEGARELIX 80 MG [Suspect]
     Indication: PROSTATE CANCER
     Dosage: SUBCUTANEOUS
     Route: 058
     Dates: start: 20091020
  2. LASIX [Concomitant]
  3. ASACOL [Concomitant]
  4. ACETAMINOPHEN [Concomitant]

REACTIONS (3)
  - INJECTION SITE PAIN [None]
  - MUSCULOSKELETAL CHEST PAIN [None]
  - NECK PAIN [None]
